FAERS Safety Report 7760104-2 (Version None)
Quarter: 2011Q3

REPORT INFORMATION
  Report Type: 
  Country: None (occurrence: None)
  Receive Date: 20110919
  Receipt Date: 20110907
  Transmission Date: 20111222
  Serious: Yes (Other)
  Sender: FDA-Public Use
  Company Number: US-BAYER-2011-065266

PATIENT
  Age: 29 Year
  Sex: Female

DRUGS (3)
  1. GENERAL ANESTHESIA [Concomitant]
     Dosage: UNK
     Dates: start: 20110630, end: 20110630
  2. I.V. SOLUTIONS [Concomitant]
     Dosage: UNK
     Dates: start: 20110630
  3. MIRENA [Suspect]
     Indication: CONTRACEPTION
     Dosage: 20 MCG/24HR, CONT
     Route: 015
     Dates: start: 20100730, end: 20110630

REACTIONS (5)
  - MENSTRUATION IRREGULAR [None]
  - DEVICE DISLOCATION [None]
  - OVARIAN CYST [None]
  - UTERINE PERFORATION [None]
  - VAGINAL HAEMORRHAGE [None]
